FAERS Safety Report 17078248 (Version 1)
Quarter: 2019Q4

REPORT INFORMATION
  Report Type: Spontaneous
  Country: US (occurrence: US)
  Receive Date: 20191126
  Receipt Date: 20191126
  Transmission Date: 20200122
  Serious: No
  Sender: FDA-Public Use
  Company Number: US-BIOMARINAP-US-2019-126766

PATIENT

DRUGS (1)
  1. ALDURAZYME [Suspect]
     Active Substance: LARONIDASE
     Indication: PRODUCT USED FOR UNKNOWN INDICATION
     Dosage: 29 MILLIGRAM, QOW
     Route: 042
     Dates: start: 20070315

REACTIONS (1)
  - Surgery [Unknown]

NARRATIVE: CASE EVENT DATE: 20191021
